FAERS Safety Report 20886595 (Version 5)
Quarter: 2022Q2

REPORT INFORMATION
  Report Type: Report from Study
  Country: CN (occurrence: CN)
  Receive Date: 20220527
  Receipt Date: 20220628
  Transmission Date: 20220720
  Serious: Yes (Hospitalization, Other)
  Sender: FDA-Public Use
  Company Number: CN-TAKEDA-2022TUS034750

PATIENT
  Age: 49 Year
  Sex: Male
  Weight: 78 kg

DRUGS (5)
  1. BRENTUXIMAB VEDOTIN [Suspect]
     Active Substance: BRENTUXIMAB VEDOTIN
     Indication: Hodgkin^s disease
     Dosage: 50 MILLIGRAM, Q3WEEKS
     Route: 041
     Dates: start: 20220318
  2. DEXAMETHASONE [Suspect]
     Active Substance: DEXAMETHASONE
     Indication: Lymphoma
     Dosage: 5 MILLIGRAM, QD
     Route: 042
     Dates: start: 20220318, end: 20220318
  3. VINDESINE [Suspect]
     Active Substance: VINDESINE
     Indication: Lymphoma
     Dosage: 50 MILLIGRAM, QD
     Route: 042
     Dates: start: 20220318
  4. DACARBAZINE [Suspect]
     Active Substance: DACARBAZINE
     Indication: Lymphoma
     Dosage: 0.7 GRAM, QD
     Route: 042
     Dates: start: 20220318
  5. METHYLCOBALAMIN [Concomitant]
     Active Substance: METHYLCOBALAMIN
     Indication: Prophylaxis
     Dosage: 0.5 MILLIGRAM, BID
     Route: 042
     Dates: start: 20220318, end: 20220318

REACTIONS (2)
  - Drug-induced liver injury [Not Recovered/Not Resolved]
  - Off label use [Unknown]

NARRATIVE: CASE EVENT DATE: 20220318
